FAERS Safety Report 16728945 (Version 1)
Quarter: 2019Q3

REPORT INFORMATION
  Report Type: Spontaneous
  Country: US (occurrence: US)
  Receive Date: 20190704
  Receipt Date: 20190704
  Transmission Date: 20191005
  Serious: Yes (Life-Threatening, Hospitalization)
  Sender: FDA-Public Use
  Company Number: None

PATIENT
  Age: 65 Year
  Sex: Male
  Weight: 70 kg

DRUGS (1)
  1. PACLITAXEL. [Suspect]
     Active Substance: PACLITAXEL
     Indication: OESOPHAGEAL CARCINOMA
     Dates: start: 20190417, end: 20190417

REACTIONS (4)
  - Wheezing [None]
  - Anaphylactic shock [None]
  - Cardio-respiratory arrest [None]
  - Hyperhidrosis [None]

NARRATIVE: CASE EVENT DATE: 20190417
